FAERS Safety Report 20449239 (Version 1)
Quarter: 2022Q1

REPORT INFORMATION
  Report Type: Spontaneous
  Country: US (occurrence: None)
  Receive Date: 20220208
  Receipt Date: 20220208
  Transmission Date: 20220423
  Serious: Yes (Death)
  Sender: FDA-Public Use
  Company Number: None

PATIENT
  Sex: Male

DRUGS (12)
  1. ELIGARD [Suspect]
     Active Substance: LEUPROLIDE ACETATE
  2. ASPIRIN CHW [Concomitant]
  3. DIGOXIN [Concomitant]
     Active Substance: DIGOXIN
  4. FENOFIBRATE CAP [Concomitant]
  5. FENOFIBRATE TAB [Concomitant]
  6. FUROSEMIDE TAB [Concomitant]
  7. LANTUS INJ [Concomitant]
  8. LIPITOR TAB [Concomitant]
  9. LOPRESSOR TAB [Concomitant]
  10. LUPRON DEPOT [Concomitant]
  11. NOVOLOG MIX INJ FLEXPEN [Concomitant]
  12. VITAMIN D CAP [Concomitant]

REACTIONS (1)
  - Death [None]
